FAERS Safety Report 23059363 (Version 2)
Quarter: 2023Q4

REPORT INFORMATION
  Report Type: Spontaneous
  Country: US (occurrence: US)
  Receive Date: 20231012
  Receipt Date: 20231219
  Transmission Date: 20240110
  Serious: Yes (Death, Other)
  Sender: FDA-Public Use
  Company Number: US-ASTELLAS-2023US029039

PATIENT
  Age: 78 Year
  Sex: Female

DRUGS (13)
  1. ENFORTUMAB VEDOTIN [Suspect]
     Active Substance: ENFORTUMAB VEDOTIN
     Indication: Bladder cancer
     Dosage: UNK, UNKNOWN FREQ.
     Route: 042
  2. ENFORTUMAB VEDOTIN [Suspect]
     Active Substance: ENFORTUMAB VEDOTIN
     Dosage: 0.5 MG/KG, ONCE WEEKLY (WEEKLY FOR 3 WEEKS ON, 1 WEEK OF EVERY 28 DAYS)
     Route: 042
     Dates: start: 20231005
  3. ENFORTUMAB VEDOTIN [Suspect]
     Active Substance: ENFORTUMAB VEDOTIN
     Dosage: 0.5 MG/KG, ONCE WEEKLY (WEEKLY FOR 3 WEEKS ON, 1 WEEK OF EVERY 28 DAYS)
     Route: 042
     Dates: start: 20231012
  4. ENFORTUMAB VEDOTIN [Suspect]
     Active Substance: ENFORTUMAB VEDOTIN
     Dosage: 1.25 MG/KG, ONCE WEEKLY (WEEKLY FOR 3 WEEKS ON, 1 WEEK OF EVERY 28 DAYS)
     Route: 042
     Dates: start: 20231019
  5. ENFORTUMAB VEDOTIN [Suspect]
     Active Substance: ENFORTUMAB VEDOTIN
     Dosage: 1.25 MG/KG, ONCE WEEKLY (WEEKLY FOR 3 WEEKS ON, 1 WEEK OF EVERY 28 DAYS)
     Route: 042
     Dates: start: 20231102
  6. ENFORTUMAB VEDOTIN [Suspect]
     Active Substance: ENFORTUMAB VEDOTIN
     Dosage: 1.25 MG/KG, ONCE WEEKLY (WEEKLY FOR 3 WEEKS ON, 1 WEEK OF EVERY 28 DAYS)
     Route: 042
     Dates: start: 20231109
  7. PEMBROLIZUMAB [Suspect]
     Active Substance: PEMBROLIZUMAB
     Indication: Product used for unknown indication
     Dosage: UNK UNK, UNKNOWN FREQ.
     Route: 065
  8. DULOXETINE [Concomitant]
     Active Substance: DULOXETINE
     Indication: Product used for unknown indication
     Route: 065
     Dates: start: 20231102, end: 20231103
  9. MONTELUKAST SODIUM [Concomitant]
     Active Substance: MONTELUKAST SODIUM
     Indication: Product used for unknown indication
     Route: 065
     Dates: start: 20230519, end: 20231103
  10. FUROSEMIDE [Concomitant]
     Active Substance: FUROSEMIDE
     Indication: Product used for unknown indication
     Route: 065
     Dates: start: 20230825, end: 20231102
  11. MULTAQ [Concomitant]
     Active Substance: DRONEDARONE
     Indication: Product used for unknown indication
     Route: 065
     Dates: start: 20230908, end: 20231029
  12. ACETAMINOPHEN\HYDROCODONE [Concomitant]
     Active Substance: ACETAMINOPHEN\HYDROCODONE
     Indication: Pain
     Dosage: 1 DF (5-325), EVERY 6 HOURS AS NEEDED
     Dates: start: 20231024, end: 20231025
  13. PREDNISONE [Concomitant]
     Active Substance: PREDNISONE
     Indication: Myasthenia gravis
     Route: 065
     Dates: start: 2022

REACTIONS (12)
  - Ventricular fibrillation [Fatal]
  - Cardiac arrest [Fatal]
  - Organ failure [Fatal]
  - Dyspnoea [Unknown]
  - Increased bronchial secretion [Unknown]
  - Oxygen saturation decreased [Unknown]
  - Eye haemorrhage [Unknown]
  - Epistaxis [Unknown]
  - Rash [Unknown]
  - Skin exfoliation [Unknown]
  - Vaginal haemorrhage [Unknown]
  - General physical health deterioration [Unknown]

NARRATIVE: CASE EVENT DATE: 20231101
